FAERS Safety Report 16963135 (Version 1)
Quarter: 2019Q4

REPORT INFORMATION
  Report Type: Spontaneous
  Country: US (occurrence: US)
  Receive Date: 20191025
  Receipt Date: 20191025
  Transmission Date: 20200122
  Serious: No
  Sender: FDA-Public Use
  Company Number: US-TEVA-2019-US-1126918

PATIENT
  Sex: Female
  Weight: 63.5 kg

DRUGS (2)
  1. ESOMEPRAZOLE. [Suspect]
     Active Substance: ESOMEPRAZOLE MAGNESIUM
     Route: 065
     Dates: start: 2018
  2. ALKA SELZTER [Concomitant]
     Indication: DYSPEPSIA
     Dosage: CHEW 1 OR 2 AS NEEDED

REACTIONS (1)
  - Drug ineffective [Unknown]
